FAERS Safety Report 6589636-X (Version None)
Quarter: 2010Q1

REPORT INFORMATION
  Report Type: 
  Country: None (occurrence: None)
  Receive Date: 20100212
  Receipt Date: 20100128
  Transmission Date: 20100710
  Serious: Yes (Other)
  Sender: FDA-Public Use
  Company Number: 234149K09USA

PATIENT
  Age: 53 Year
  Sex: Male
  Weight: 90 kg

DRUGS (8)
  1. REBIF [Suspect]
     Indication: RELAPSING-REMITTING MULTIPLE SCLEROSIS
     Dosage: 44 MCG, 3 IN WEEKS, SUBCUTANEOUS; 44 MCG, 3 IN 1 WEEKS, SUBCUTANEOUS
     Route: 058
     Dates: start: 20051001, end: 20090201
  2. REBIF [Suspect]
     Indication: RELAPSING-REMITTING MULTIPLE SCLEROSIS
     Dosage: 44 MCG, 3 IN WEEKS, SUBCUTANEOUS; 44 MCG, 3 IN 1 WEEKS, SUBCUTANEOUS
     Route: 058
     Dates: start: 20090801
  3. LISINOPRIL [Concomitant]
  4. COREG [Concomitant]
  5. ALDACTONE [Concomitant]
  6. ZOCOR (ZOCOR CARDIO ASS) [Concomitant]
  7. PRILOSEC [Concomitant]
  8. ASPIRIN [Concomitant]

REACTIONS (1)
  - PROSTATE CANCER [None]
